FAERS Safety Report 17064171 (Version 4)
Quarter: 2020Q1

REPORT INFORMATION
  Report Type: Spontaneous
  Country: DE (occurrence: DE)
  Receive Date: 20191122
  Receipt Date: 20200224
  Transmission Date: 20200409
  Serious: Yes (Death, Other)
  Sender: FDA-Public Use
  Company Number: DE-PFIZER INC-2019507016

PATIENT
  Age: 96 Year
  Sex: Female

DRUGS (7)
  1. PANTOPRAZOLE [Suspect]
     Active Substance: PANTOPRAZOLE
     Dosage: UNK
     Route: 065
  2. TORASEMIDE MYLAN [Suspect]
     Active Substance: TORSEMIDE
     Dosage: UNK
     Route: 065
  3. METOPROLOL MYLAN [Suspect]
     Active Substance: METOPROLOL
     Dosage: UNK
     Route: 065
  4. ACETYLSALICYLIC ACID [Suspect]
     Active Substance: ASPIRIN
     Dosage: UNK
     Route: 065
  5. NOVAMINSULFON [Suspect]
     Active Substance: METAMIZOLE
     Dosage: UNK
     Route: 065
  6. INFLUSPLIT TETRA [Suspect]
     Active Substance: INFLUENZA VIRUS VACCINE
     Dosage: UNK
     Route: 065
  7. RAMIPRIL. [Suspect]
     Active Substance: RAMIPRIL
     Dosage: UNK
     Route: 048

REACTIONS (1)
  - Death [Fatal]
